FAERS Safety Report 8578928-0 (Version None)
Quarter: 2012Q3

REPORT INFORMATION
  Report Type: 
  Country: None (occurrence: None)
  Receive Date: 20120808
  Receipt Date: 20120730
  Transmission Date: 20120928
  Serious: Yes (Hospitalization)
  Sender: FDA-Public Use
  Company Number: US-JNJFOC-20120801680

PATIENT
  Sex: Male
  Weight: 66.5 kg

DRUGS (4)
  1. REMICADE [Suspect]
     Indication: INFLAMMATORY BOWEL DISEASE
     Route: 042
     Dates: start: 20100913
  2. MELATONIN [Concomitant]
  3. DIPHENHYDRAMINE HYDROCHLORIDE [Concomitant]
  4. ACETAMINOPHEN [Concomitant]

REACTIONS (1)
  - INTESTINAL FISTULA [None]
